FAERS Safety Report 12873022 (Version 1)
Quarter: 2016Q4

REPORT INFORMATION
  Report Type: Spontaneous
  Country: US (occurrence: US)
  Receive Date: 20161021
  Receipt Date: 20161021
  Transmission Date: 20170207
  Serious: No
  Sender: FDA-Public Use
  Company Number: US-TAMARANG, S.A.-1058608

PATIENT
  Age: 50 Year
  Sex: Male
  Weight: 140 kg

DRUGS (13)
  1. VECURONIUM [Concomitant]
     Active Substance: VECURONIUM BROMIDE
  2. LIDOCAINE. [Concomitant]
     Active Substance: LIDOCAINE
  3. SEVOFLURANE. [Concomitant]
     Active Substance: SEVOFLURANE
  4. ROCURONIUM BROMIDE. [Suspect]
     Active Substance: ROCURONIUM BROMIDE
     Indication: NEUROMUSCULAR BLOCKADE
     Route: 042
  5. NEOSTIGMINE METHYLSULFATE. [Concomitant]
     Active Substance: NEOSTIGMINE METHYLSULFATE
  6. CEFAZOLIN SODIUM. [Concomitant]
     Active Substance: CEFAZOLIN SODIUM
  7. PROPOFOL. [Concomitant]
     Active Substance: PROPOFOL
  8. TRANEXAMIC ACID. [Concomitant]
     Active Substance: TRANEXAMIC ACID
  9. GLYCOPYRROLATE. [Concomitant]
     Active Substance: GLYCOPYRROLATE
  10. HYDROMORPHONE HCL [Concomitant]
     Active Substance: HYDROMORPHONE HYDROCHLORIDE
  11. FENTANYL. [Concomitant]
     Active Substance: FENTANYL
  12. ONDANSETRON [Concomitant]
     Active Substance: ONDANSETRON
  13. PHENYLEPHRINE [Concomitant]
     Active Substance: PHENYLEPHRINE\PHENYLEPHRINE HYDROCHLORIDE

REACTIONS (1)
  - Drug ineffective [None]

NARRATIVE: CASE EVENT DATE: 20160628
